FAERS Safety Report 7553745-9 (Version None)
Quarter: 2011Q2

REPORT INFORMATION
  Report Type: 
  Country: None (occurrence: None)
  Receive Date: 20110614
  Receipt Date: 20110614
  Transmission Date: 20111010
  Serious: Yes (Other)
  Sender: FDA-Public Use
  Company Number: None

PATIENT
  Age: 48 Year
  Sex: Male
  Weight: 113.3993 kg

DRUGS (1)
  1. AXIRON [Suspect]
     Indication: BLOOD TESTOSTERONE DECREASED
     Dosage: 1 PUMP UNDER EACH ARM DAILY CUTANEOUS
     Route: 003
     Dates: start: 20110501, end: 20110501

REACTIONS (7)
  - APPLICATION SITE SWELLING [None]
  - SKIN IRRITATION [None]
  - PAIN [None]
  - BURNING SENSATION [None]
  - APPLICATION SITE RASH [None]
  - SKIN CHAPPED [None]
  - APPLICATION SITE DISCOMFORT [None]
